FAERS Safety Report 10943943 (Version 2)
Quarter: 2015Q1

REPORT INFORMATION
  Report Type: Report from Study
  Country: GB (occurrence: GB)
  Receive Date: 20150323
  Receipt Date: 20150331
  Transmission Date: 20150721
  Serious: Yes (Hospitalization)
  Sender: FDA-Public Use
  Company Number: GB-ROCHE-1502562

PATIENT
  Sex: Female
  Weight: 77.8 kg

DRUGS (8)
  1. CYTARABINE. [Concomitant]
     Active Substance: CYTARABINE
     Dosage: DAY 2
     Route: 065
     Dates: start: 20121228, end: 20121229
  2. VINCRISTINE [Concomitant]
     Active Substance: VINCRISTINE
     Dosage: DAY 1
     Route: 042
     Dates: start: 20121227, end: 20121227
  3. PEG/L-ASPARAGINASE [Suspect]
     Active Substance: PEGASPARGASE
     Indication: ACUTE LYMPHOCYTIC LEUKAEMIA
     Dosage: DAY 2, 10, 16
     Route: 042
     Dates: start: 20121123, end: 20121207
  4. DALTEPARIN [Concomitant]
     Active Substance: DALTEPARIN
     Route: 058
     Dates: start: 20130103
  5. PREDNISOLONE. [Concomitant]
     Active Substance: PREDNISOLONE
     Dosage: DAY 1-5
     Route: 065
     Dates: start: 20121227, end: 20121231
  6. RITUXIMAB [Suspect]
     Active Substance: RITUXIMAB
     Indication: ACUTE LYMPHOCYTIC LEUKAEMIA
     Dosage: START DATE OF MOST RECENT DOSE PRIOR TO SAE: 27/DEC/2012?FREQUENCY DAY 17- DAY 24
     Route: 042
     Dates: start: 20120907, end: 20120921
  7. METHOTREXATE [Concomitant]
     Active Substance: METHOTREXATE
     Route: 048
     Dates: start: 20121227, end: 20121227
  8. METOCLOPRAMIDE. [Concomitant]
     Active Substance: METOCLOPRAMIDE
     Indication: NAUSEA
     Dosage: 10-20 MG
     Route: 048
     Dates: start: 20120828

REACTIONS (1)
  - Hyponatraemia [Recovered/Resolved]

NARRATIVE: CASE EVENT DATE: 20130103
